FAERS Safety Report 7908493-X (Version None)
Quarter: 2011Q4

REPORT INFORMATION
  Report Type: 
  Country: None (occurrence: None)
  Receive Date: 20111111
  Receipt Date: 20111102
  Transmission Date: 20120403
  Serious: Yes (Other)
  Sender: FDA-Public Use
  Company Number: ES-JNJFOC-20111007068

PATIENT
  Age: 29 Year
  Sex: Female
  Weight: 49 kg

DRUGS (4)
  1. INFLIXIMAB [Suspect]
     Indication: CROHN'S DISEASE
     Route: 042
     Dates: start: 20061201, end: 20070101
  2. AZATHIOPRINE [Concomitant]
     Indication: CROHN'S DISEASE
  3. ADALIMUMAB [Suspect]
     Indication: CROHN'S DISEASE
     Dates: start: 20090601, end: 20100301
  4. MESALAMINE [Concomitant]
     Indication: CROHN'S DISEASE

REACTIONS (2)
  - TOXIC SKIN ERUPTION [None]
  - PSORIASIS [None]
